FAERS Safety Report 12648018 (Version 1)
Quarter: 2016Q3

REPORT INFORMATION
  Report Type: Spontaneous
  Country: US (occurrence: None)
  Receive Date: 20160811
  Receipt Date: 20160811
  Transmission Date: 20161109
  Serious: No
  Sender: FDA-Public Use
  Company Number: None

PATIENT
  Age: 65 Year
  Sex: Female

DRUGS (2)
  1. BOTOX [Suspect]
     Active Substance: ONABOTULINUMTOXINA
     Dosage: 200 UNITS   ONCE   IM HEAD + NECK
     Route: 030
     Dates: start: 20160715
  2. MAXALT [Concomitant]
     Active Substance: RIZATRIPTAN BENZOATE

REACTIONS (3)
  - Dyspnoea [None]
  - Therapy non-responder [None]
  - Fatigue [None]

NARRATIVE: CASE EVENT DATE: 201608
